FAERS Safety Report 7124339-4 (Version None)
Quarter: 2010Q4

REPORT INFORMATION
  Report Type: 
  Country: None (occurrence: None)
  Receive Date: 20101126
  Receipt Date: 20101119
  Transmission Date: 20110411
  Serious: Yes (Other)
  Sender: FDA-Public Use
  Company Number: CHPA2010US18070

PATIENT
  Age: 89 Year
  Sex: Female

DRUGS (3)
  1. VOLTAREN [Suspect]
     Indication: BACK PAIN
     Dosage: UNK
     Route: 061
     Dates: start: 20101028, end: 20100101
  2. VOLTAREN [Suspect]
     Dosage: UNK
     Route: 061
     Dates: start: 20101119, end: 20101101
  3. HAIN PENUT OIL [Concomitant]
     Indication: ARTHRITIS
     Route: 061

REACTIONS (4)
  - DRUG ADMINISTERED AT INAPPROPRIATE SITE [None]
  - DRUG INEFFECTIVE FOR UNAPPROVED INDICATION [None]
  - NEPHROLITHIASIS [None]
  - WRONG TECHNIQUE IN DRUG USAGE PROCESS [None]
